FAERS Safety Report 6628387-X (Version None)
Quarter: 2010Q1

REPORT INFORMATION
  Report Type: 
  Country: None (occurrence: None)
  Receive Date: 20100311
  Receipt Date: 20100301
  Transmission Date: 20100710
  Serious: Yes (Hospitalization)
  Sender: FDA-Public Use
  Company Number: FI-ROCHE-688809

PATIENT
  Sex: Female

DRUGS (9)
  1. BONIVA [Suspect]
     Indication: OSTEOPOROSIS
     Route: 048
     Dates: start: 20070808, end: 20090501
  2. AVANDIA [Suspect]
     Route: 048
     Dates: start: 20050901, end: 20090501
  3. DIAFORMIN [Concomitant]
     Dosage: FREQUENCY: 1500 MG TWICE DAIL, DRUG: PERSANTIN DEPOT.
     Route: 048
  4. PERSANTINE [Concomitant]
     Route: 048
  5. PRAMIPEXOLE DIHYDROCHLORIDE [Concomitant]
     Indication: PARKINSON'S DISEASE
     Route: 048
  6. LOSARTAN POTASSIUM [Concomitant]
     Indication: HYPERTENSION
     Dosage: DRUG: LOSATRIX.
     Route: 048
  7. IDEOS [Concomitant]
     Indication: OSTEOPOROSIS
     Dosage: DOSE: 500MG CALCIUM AND 400 IU VITAMIN D3,
     Route: 048
  8. ACETYLSALICYLIC ACID [Concomitant]
  9. SIMVASTATIN [Concomitant]

REACTIONS (7)
  - BLOOD 1,25-DIHYDROXYCHOLECALCIFEROL DECREASED [None]
  - FALL [None]
  - FRACTURED SACRUM [None]
  - IMPAIRED HEALING [None]
  - OSTEOPOROSIS [None]
  - PELVIC FRACTURE [None]
  - PUBIS FRACTURE [None]
